FAERS Safety Report 23579050 (Version 2)
Quarter: 2024Q4

REPORT INFORMATION
  Report Type: Spontaneous
  Country: US (occurrence: US)
  Receive Date: 20240229
  Receipt Date: 20241001
  Transmission Date: 20250115
  Serious: Yes (Life-Threatening, Hospitalization, Other)
  Sender: HIKMA
  Company Number: US-HIKMA PHARMACEUTICALS USA INC.-US-H14001-24-01371

PATIENT
  Age: 85 Year
  Sex: Female
  Weight: 57.7 kg

DRUGS (1)
  1. HEPARIN [Suspect]
     Active Substance: HEPARIN SODIUM
     Indication: Thrombosis prophylaxis
     Dosage: 500 INTERNATIONAL UNIT, Q8H
     Route: 058

REACTIONS (5)
  - Factor Xa activity increased [Unknown]
  - Coagulopathy [Recovered/Resolved]
  - Cerebral mass effect [Recovering/Resolving]
  - Haemorrhage intracranial [Recovering/Resolving]
  - Arachnoid cyst [Recovering/Resolving]
